FAERS Safety Report 8610350-0 (Version None)
Quarter: 2012Q3

REPORT INFORMATION
  Report Type: 
  Country: None (occurrence: None)
  Receive Date: 20120822
  Receipt Date: 20120817
  Transmission Date: 20120928
  Serious: Yes (Hospitalization, Other)
  Sender: FDA-Public Use
  Company Number: PHHY2012MX071899

PATIENT
  Sex: Male

DRUGS (3)
  1. STALEVO 100 [Suspect]
     Indication: PARKINSON'S DISEASE
     Dosage: 200/50/12.5 MG UNSPECIFIED FREQUENCY BY DAY
     Route: 048
  2. LINAGLIPTIN [Concomitant]
     Dosage: 1 DF, QD
  3. GLUCOCOTAT [Concomitant]
     Indication: METABOLIC DISORDER
     Dosage: 1 DF, TID

REACTIONS (6)
  - DIARRHOEA [None]
  - PYURIA [None]
  - FLUID RETENTION [None]
  - SYNCOPE [None]
  - ABDOMINAL PAIN UPPER [None]
  - INFLAMMATION [None]
